FAERS Safety Report 14534712 (Version 1)
Quarter: 2018Q1

REPORT INFORMATION
  Report Type: Spontaneous
  Country: BE (occurrence: BE)
  Receive Date: 20180215
  Receipt Date: 20180215
  Transmission Date: 20180509
  Serious: Yes (Other)
  Sender: FDA-Public Use
  Company Number: BE-UCBSA-2018004925

PATIENT
  Age: 29 Year
  Sex: Female

DRUGS (4)
  1. CEREZYME [Suspect]
     Active Substance: IMIGLUCERASE
     Indication: GAUCHER^S DISEASE TYPE III
     Dosage: DOSE:5600 UNIT(S), WEEKLY (QW)
     Route: 041
  2. KEPPRA [Suspect]
     Active Substance: LEVETIRACETAM
     Dosage: 2000 MG DAILY
     Dates: start: 2017
  3. KEPPRA [Suspect]
     Active Substance: LEVETIRACETAM
     Indication: GENERALISED TONIC-CLONIC SEIZURE
     Dosage: 2 UNSPECIFEID UNITS, DAILY
  4. FRISIUM [Suspect]
     Active Substance: CLOBAZAM
     Indication: GENERALISED TONIC-CLONIC SEIZURE
     Dosage: UNK

REACTIONS (10)
  - Fatigue [Recovered/Resolved]
  - Hypersomnia [Unknown]
  - Incorrect drug administration duration [Unknown]
  - Poor quality sleep [Recovered/Resolved]
  - Pain in extremity [Unknown]
  - Tongue biting [Recovered/Resolved]
  - Generalised tonic-clonic seizure [Recovered/Resolved]
  - Stress [Unknown]
  - Back pain [Unknown]
  - Micturition disorder [Unknown]

NARRATIVE: CASE EVENT DATE: 20170530
